FAERS Safety Report 13774684 (Version 1)
Quarter: 2017Q3

REPORT INFORMATION
  Report Type: Spontaneous
  Country: US (occurrence: US)
  Receive Date: 20170720
  Receipt Date: 20170720
  Transmission Date: 20171127
  Serious: No
  Sender: FDA-Public Use
  Company Number: None

PATIENT
  Age: 46 Year
  Sex: Female

DRUGS (1)
  1. HUMIRA [Suspect]
     Active Substance: ADALIMUMAB
     Indication: RHEUMATOID ARTHRITIS
     Dosage: HUMIRA START CROHN/UC/HS PEN 40MG/0.8ML INJECT 4 PENS (160MG) SUBCUTANEOUSLY ON DAY 1, THEN INJECT 2 PENS (80MG ON DAY 15. THEN INJECT 40 MG AS DIRECTED AS
     Route: 058
     Dates: start: 20170608

REACTIONS (2)
  - Injection site pruritus [None]
  - Injection site erythema [None]
